FAERS Safety Report 24912546 (Version 1)
Quarter: 2025Q1

REPORT INFORMATION
  Report Type: Spontaneous
  Country: AU (occurrence: AU)
  Receive Date: 20250131
  Receipt Date: 20250131
  Transmission Date: 20250409
  Serious: Yes (Hospitalization)
  Sender: PFIZER
  Company Number: AU-TAKEDA-2025TUS009728

PATIENT
  Age: 24 Year
  Sex: Female

DRUGS (1)
  1. PANTOPRAZOLE [Suspect]
     Active Substance: PANTOPRAZOLE
     Dosage: 40 MILLIGRAM, QD
     Route: 048
     Dates: start: 20241115, end: 20241213

REACTIONS (4)
  - Dermatitis bullous [Not Recovered/Not Resolved]
  - Rash erythematous [Not Recovered/Not Resolved]
  - Stomatitis [Not Recovered/Not Resolved]
  - Vulvar erosion [Not Recovered/Not Resolved]

NARRATIVE: CASE EVENT DATE: 20241209
